FAERS Safety Report 20174089 (Version 1)
Quarter: 2021Q4

REPORT INFORMATION
  Report Type: Spontaneous
  Country: TW (occurrence: TW)
  Receive Date: 20211213
  Receipt Date: 20211213
  Transmission Date: 20220303
  Serious: No
  Sender: FDA-Public Use
  Company Number: TW-ALKEM LABORATORIES LIMITED-TW-ALKEM-2021-01058

PATIENT

DRUGS (2)
  1. ISONIAZID [Interacting]
     Active Substance: ISONIAZID
     Indication: Latent tuberculosis
     Dosage: UNK UNK, QD
     Route: 065
  2. RIFAPENTINE [Interacting]
     Active Substance: RIFAPENTINE
     Indication: Latent tuberculosis
     Dosage: UNK UNK, ONCE WEEKLY
     Route: 065

REACTIONS (1)
  - Drug interaction [Unknown]
